FAERS Safety Report 9018084 (Version 3)
Quarter: 2013Q1

REPORT INFORMATION
  Report Type: Spontaneous
  Country: DK (occurrence: DK)
  Receive Date: 20130117
  Receipt Date: 20130129
  Transmission Date: 20140127
  Serious: Yes (Other)
  Sender: FDA-Public Use
  Company Number: PHHY2013DK002610

PATIENT
  Sex: Female

DRUGS (20)
  1. EPIRUBICIN [Suspect]
     Indication: PRODUCT USED FOR UNKNOWN INDICATION
     Dosage: UNK
     Route: 065
  2. EPIRUBICIN [Suspect]
     Route: 065
  3. VINORELBINE [Suspect]
     Route: 065
  4. FLUOROURACIL [Suspect]
     Route: 065
  5. BONDRONAT [Suspect]
     Indication: PRODUCT USED FOR UNKNOWN INDICATION
     Route: 065
     Dates: start: 201101
  6. TAXOL [Suspect]
     Indication: PRODUCT USED FOR UNKNOWN INDICATION
     Route: 065
  7. TAXOL [Suspect]
     Route: 065
  8. HERCEPTIN [Suspect]
     Indication: PRODUCT USED FOR UNKNOWN INDICATION
     Route: 065
  9. HERCEPTIN [Suspect]
     Route: 065
     Dates: start: 201008
  10. HERCEPTIN [Suspect]
     Route: 065
     Dates: start: 201101
  11. HERCEPTIN [Suspect]
     Route: 065
  12. XELODA [Suspect]
     Indication: BREAST CANCER METASTATIC
     Dates: start: 20081025
  13. XELODA [Suspect]
     Dosage: UNK
     Route: 065
     Dates: start: 200901, end: 20100416
  14. XELODA [Suspect]
     Dosage: UNK
     Route: 065
     Dates: start: 201101
  15. TAXOTERE [Suspect]
     Indication: PRODUCT USED FOR UNKNOWN INDICATION
     Route: 065
  16. TAXOTERE [Suspect]
     Route: 065
     Dates: start: 201008
  17. TAXOTERE [Suspect]
     Route: 065
  18. LAPATINIB [Suspect]
     Route: 065
  19. CYCLOPHOSPHAMIDE [Suspect]
     Indication: PRODUCT USED FOR UNKNOWN INDICATION
     Route: 065
  20. ESOMEPRAZOLE MAGNESIUM [Concomitant]

REACTIONS (5)
  - Joint ankylosis [Unknown]
  - Palmar-plantar erythrodysaesthesia syndrome [Not Recovered/Not Resolved]
  - Dermatitis [Recovering/Resolving]
  - Rash [Unknown]
  - Breast cancer [Not Recovered/Not Resolved]
